FAERS Safety Report 24722171 (Version 1)
Quarter: 2024Q4

REPORT INFORMATION
  Report Type: Spontaneous
  Country: GB (occurrence: GB)
  Receive Date: 20241211
  Receipt Date: 20241211
  Transmission Date: 20250115
  Serious: Yes (Death, Other)
  Sender: ASTELLAS
  Company Number: GB-ASTELLAS-2024-AER-024346

PATIENT
  Age: 44 Year
  Sex: Female

DRUGS (1)
  1. TACROLIMUS [Suspect]
     Active Substance: TACROLIMUS
     Indication: Renal transplant
     Route: 065

REACTIONS (4)
  - Central nervous system lymphoma [Fatal]
  - Posterior reversible encephalopathy syndrome [Fatal]
  - T-cell lymphoma [Fatal]
  - Urosepsis [Unknown]
